FAERS Safety Report 11665460 (Version 1)
Quarter: 2015Q4

REPORT INFORMATION
  Report Type: Spontaneous
  Country: US (occurrence: US)
  Receive Date: 20151027
  Receipt Date: 20151027
  Transmission Date: 20160304
  Serious: No
  Sender: FDA-Public Use
  Company Number: US-ELI_LILLY_AND_COMPANY-US200912005329

PATIENT
  Sex: Female
  Weight: 37.19 kg

DRUGS (1)
  1. FORTEO [Suspect]
     Active Substance: TERIPARATIDE
     Indication: OSTEOPOROSIS
     Dosage: 20 UG, DAILY (1/D)
     Dates: start: 20090901

REACTIONS (4)
  - Intentional device misuse [Unknown]
  - Injection site bruising [Not Recovered/Not Resolved]
  - Medication error [Unknown]
  - Injection site erythema [Unknown]
